FAERS Safety Report 6476548-5 (Version None)
Quarter: 2009Q4

REPORT INFORMATION
  Report Type: 
  Country: None (occurrence: None)
  Receive Date: 20091207
  Receipt Date: 20091202
  Transmission Date: 20100525
  Serious: Yes (Death)
  Sender: FDA-Public Use
  Company Number: JP-ELI_LILLY_AND_COMPANY-JP200912000696

PATIENT
  Age: 44 Year
  Sex: Male

DRUGS (8)
  1. GEMZAR [Suspect]
     Indication: TESTICULAR CHORIOCARCINOMA STAGE III
     Dosage: UNK, UNK
     Route: 042
  2. PACLITAXEL [Concomitant]
     Indication: TESTICULAR CHORIOCARCINOMA STAGE III
     Route: 042
  3. PACLITAXEL [Concomitant]
     Route: 042
  4. IFOSFAMIDE [Concomitant]
     Indication: TESTICULAR CHORIOCARCINOMA STAGE III
     Route: 042
  5. NEDAPLATIN [Concomitant]
     Indication: TESTICULAR CHORIOCARCINOMA STAGE III
     Route: 042
  6. NEDAPLATIN [Concomitant]
     Route: 042
  7. NEDAPLATIN [Concomitant]
     Route: 042
  8. IRINOTECAN /01280202/ [Concomitant]
     Indication: TESTICULAR CHORIOCARCINOMA STAGE III
     Route: 042

REACTIONS (3)
  - BONE MARROW FAILURE [None]
  - OFF LABEL USE [None]
  - SEPSIS [None]
